FAERS Safety Report 16381486 (Version 4)
Quarter: 2019Q3

REPORT INFORMATION
  Report Type: Spontaneous
  Country: JP (occurrence: JP)
  Receive Date: 20190603
  Receipt Date: 20190728
  Transmission Date: 20191004
  Serious: Yes (Other)
  Sender: FDA-Public Use
  Company Number: JP-AMGEN-JPNSP2019087208

PATIENT
  Age: 72 Year
  Sex: Male

DRUGS (10)
  1. ABRAXANE [Suspect]
     Active Substance: PACLITAXEL
     Dosage: UNK
     Route: 041
     Dates: start: 20190530, end: 20190530
  2. G-LASTA [Suspect]
     Active Substance: PEGFILGRASTIM
     Indication: COLONY STIMULATING FACTOR THERAPY
     Dosage: 3.6 MILLIGRAM
     Route: 058
     Dates: start: 20190504, end: 20190504
  3. ABRAXANE [Suspect]
     Active Substance: PACLITAXEL
     Indication: GASTRIC CANCER
     Dosage: 130 MILLIGRAM
     Route: 041
  4. G-LASTA [Suspect]
     Active Substance: PEGFILGRASTIM
     Dosage: 3.6 MILLIGRAM
     Route: 058
     Dates: start: 20190601, end: 20190601
  5. CYRAMZA [Concomitant]
     Active Substance: RAMUCIRUMAB
     Dosage: 450 MILLIGRAM, FOURTH COURSE
     Route: 041
     Dates: start: 20190517, end: 20190517
  6. CYRAMZA [Concomitant]
     Active Substance: RAMUCIRUMAB
     Dosage: UNK
     Route: 041
     Dates: start: 20190530, end: 20190530
  7. ABRAXANE [Suspect]
     Active Substance: PACLITAXEL
     Dosage: 130 MILLIGRAM, FOURTH COURSE
     Route: 041
     Dates: start: 20190517, end: 20190517
  8. ABRAXANE [Suspect]
     Active Substance: PACLITAXEL
     Dosage: 130 MILLIGRAM
     Route: 041
     Dates: start: 20190503, end: 20190503
  9. CYRAMZA [Concomitant]
     Active Substance: RAMUCIRUMAB
     Indication: GASTRIC CANCER
     Dosage: 450 MILLIGRAM
     Route: 041
  10. CYRAMZA [Concomitant]
     Active Substance: RAMUCIRUMAB
     Dosage: 450 MILLIGRAM
     Route: 041
     Dates: start: 20190503, end: 20190503

REACTIONS (3)
  - Chemotherapy [Unknown]
  - Neutrophil toxic granulation present [Not Recovered/Not Resolved]
  - Lymphocyte morphology abnormal [Not Recovered/Not Resolved]

NARRATIVE: CASE EVENT DATE: 20190517
